FAERS Safety Report 4622265-3 (Version None)
Quarter: 2005Q1

REPORT INFORMATION
  Report Type: 
  Country: None (occurrence: None)
  Receive Date: 20050328
  Receipt Date: 20050315
  Transmission Date: 20050727
  Serious: Yes (Hospitalization)
  Sender: FDA-Public Use
  Company Number: 2005AP01773

PATIENT
  Age: 54 Year
  Sex: Male

DRUGS (9)
  1. DIPRIVAN [Suspect]
     Indication: POSTOPERATIVE CARE
     Dosage: 100 ML DAILY; IV
     Route: 042
     Dates: start: 20050214, end: 20050214
  2. DIPRIVAN [Suspect]
     Indication: SEDATION
     Dosage: 100 ML DAILY; IV
     Route: 042
     Dates: start: 20050214, end: 20050214
  3. DIPRIVAN [Suspect]
     Indication: POSTOPERATIVE CARE
     Dosage: 500 ML DAILY; IV
     Route: 042
     Dates: start: 20050215, end: 20050215
  4. DIPRIVAN [Suspect]
     Indication: SEDATION
     Dosage: 500 ML DAILY; IV
     Route: 042
     Dates: start: 20050215, end: 20050215
  5. DIPRIVAN [Suspect]
     Indication: POSTOPERATIVE CARE
     Dosage: 400 ML DAILY; IV
     Route: 042
     Dates: start: 20050216, end: 20050216
  6. DIPRIVAN [Suspect]
     Indication: SEDATION
     Dosage: 400 ML DAILY; IV
     Route: 042
     Dates: start: 20050216, end: 20050216
  7. DIPRIVAN [Suspect]
     Indication: POSTOPERATIVE CARE
     Dosage: 350 ML DAILY; IV
     Route: 042
     Dates: start: 20050217, end: 20050217
  8. DIPRIVAN [Suspect]
     Indication: SEDATION
     Dosage: 350 ML DAILY; IV
     Route: 042
     Dates: start: 20050217, end: 20050217
  9. DIPRIVAN [Suspect]
     Indication: POSTOPERATIVE CARE
     Dosage: 100 ML DAILY; IV
     Route: 042
     Dates: start: 20050218, end: 20050218

REACTIONS (1)
  - HYPERTHERMIA MALIGNANT [None]
